FAERS Safety Report 6116841-9 (Version None)
Quarter: 2009Q1

REPORT INFORMATION
  Report Type: 
  Country: None (occurrence: None)
  Receive Date: 20090314
  Receipt Date: 20081230
  Transmission Date: 20090719
  Serious: No
  Sender: FDA-Public Use
  Company Number: US-ABBOTT-08P-163-0495242-00

PATIENT
  Sex: Male
  Weight: 111.23 kg

DRUGS (2)
  1. HUMIRA [Suspect]
     Indication: PSORIASIS
     Route: 058
     Dates: start: 20071101
  2. VITAMINS [Concomitant]
     Indication: VITAMIN SUPPLEMENTATION
     Dosage: ONCE IN A WHILE
     Route: 048

REACTIONS (2)
  - NASOPHARYNGITIS [None]
  - PSORIASIS [None]
